FAERS Safety Report 8281435-6 (Version None)
Quarter: 2012Q2

REPORT INFORMATION
  Report Type: 
  Country: None (occurrence: None)
  Receive Date: 20120411
  Receipt Date: 20120411
  Transmission Date: 20120825
  Serious: Yes (Disabling, Other)
  Sender: FDA-Public Use
  Company Number: None

PATIENT
  Age: 63 Year
  Sex: Female
  Weight: 86.1834 kg

DRUGS (1)
  1. CIPROFLOXACIN [Suspect]
     Indication: URINARY TRACT INFECTION
     Dosage: 500MG TAB TWICE A DAY ORAL
     Route: 048
     Dates: start: 20111019, end: 20111023

REACTIONS (8)
  - MUSCLE TWITCHING [None]
  - NAUSEA [None]
  - HYPOAESTHESIA [None]
  - PAIN IN EXTREMITY [None]
  - ABDOMINAL PAIN [None]
  - BONE PAIN [None]
  - GROIN PAIN [None]
  - ARTHRALGIA [None]
